FAERS Safety Report 14272983 (Version 7)
Quarter: 2018Q1

REPORT INFORMATION
  Report Type: Spontaneous
  Country: US (occurrence: US)
  Receive Date: 20171211
  Receipt Date: 20180215
  Transmission Date: 20180508
  Serious: No
  Sender: FDA-Public Use
  Company Number: US-BIOGEN-2017BI00423172

PATIENT
  Age: 69 Year
  Sex: Female

DRUGS (2)
  1. PLEGRIDY [Suspect]
     Active Substance: PEGINTERFERON BETA-1A
     Indication: MULTIPLE SCLEROSIS
     Route: 058
     Dates: start: 20141203, end: 20150105
  2. ACTHAR [Concomitant]
     Active Substance: CORTICOTROPIN
     Indication: MULTIPLE SCLEROSIS RELAPSE
     Route: 065

REACTIONS (26)
  - Musculoskeletal stiffness [Not Recovered/Not Resolved]
  - Hallucination [Not Recovered/Not Resolved]
  - Drug effect incomplete [Recovered/Resolved]
  - Gait disturbance [Recovered/Resolved]
  - Neuralgia [Not Recovered/Not Resolved]
  - Swelling [Unknown]
  - Musculoskeletal disorder [Recovered/Resolved with Sequelae]
  - Asthenia [Not Recovered/Not Resolved]
  - Dizziness [Unknown]
  - Feeling hot [Unknown]
  - Temperature intolerance [Recovered/Resolved]
  - Feeling abnormal [Recovered/Resolved]
  - Fatigue [Not Recovered/Not Resolved]
  - Condition aggravated [Unknown]
  - Muscle spasms [Not Recovered/Not Resolved]
  - Memory impairment [Not Recovered/Not Resolved]
  - Drug intolerance [Unknown]
  - Gait inability [Recovered/Resolved]
  - Pain in extremity [Not Recovered/Not Resolved]
  - Balance disorder [Not Recovered/Not Resolved]
  - Confusional state [Not Recovered/Not Resolved]
  - Malaise [Recovered/Resolved]
  - Motor dysfunction [Recovered/Resolved]
  - Groin pain [Recovered/Resolved]
  - Visual impairment [Not Recovered/Not Resolved]
  - Nervousness [Not Recovered/Not Resolved]

NARRATIVE: CASE EVENT DATE: 20171027
